FAERS Safety Report 20315423 (Version 2)
Quarter: 2022Q1

REPORT INFORMATION
  Report Type: Spontaneous
  Country: US (occurrence: US)
  Receive Date: 20220110
  Receipt Date: 20220302
  Transmission Date: 20220423
  Serious: Yes (Other)
  Sender: FDA-Public Use
  Company Number: US-JNJFOC-20220108159

PATIENT
  Age: 6 Decade
  Sex: Female

DRUGS (32)
  1. ELMIRON [Suspect]
     Active Substance: PENTOSAN POLYSULFATE SODIUM
     Indication: Cystitis interstitial
     Route: 048
     Dates: end: 2006
  2. ELMIRON [Suspect]
     Active Substance: PENTOSAN POLYSULFATE SODIUM
     Route: 048
     Dates: start: 2006, end: 2010
  3. ELMIRON [Suspect]
     Active Substance: PENTOSAN POLYSULFATE SODIUM
     Route: 048
     Dates: start: 2010, end: 20200106
  4. ALAWAY [Concomitant]
     Active Substance: KETOTIFEN FUMARATE
     Dosage: OPHTHALMIC DROPS
     Route: 047
     Dates: start: 2019
  5. CLOBETASOL [Concomitant]
     Active Substance: CLOBETASOL
     Indication: Eczema
     Dates: start: 2004
  6. SIMETHICONE (DIMETHICONE) [Concomitant]
     Active Substance: DIMETHICONE
     Dates: start: 2019
  7. CETIRIZINE HYDROCHLORIDE [Concomitant]
     Active Substance: CETIRIZINE HYDROCHLORIDE
     Indication: Hypersensitivity
     Dates: start: 2017
  8. CIPROFLOXACIN [Concomitant]
     Active Substance: CIPROFLOXACIN
     Indication: Drug therapy
     Dates: start: 2004
  9. HYDROXYZINE [Concomitant]
     Active Substance: HYDROXYZINE HYDROCHLORIDE
     Indication: Cystitis interstitial
     Dates: start: 2005
  10. LORAZEPAM [Concomitant]
     Active Substance: LORAZEPAM
     Indication: Pouchitis
     Dates: start: 2006
  11. LORAZEPAM [Concomitant]
     Active Substance: LORAZEPAM
     Indication: Colitis ulcerative
  12. LEVOTHYROXINE [Concomitant]
     Active Substance: LEVOTHYROXINE
     Indication: Hypothyroidism
     Dates: start: 2006
  13. AMITRIPTYLINE [Concomitant]
     Active Substance: AMITRIPTYLINE
     Indication: Cystitis interstitial
     Dates: start: 2006
  14. POLYVINYL ALCOHOL;POVIDONE [Concomitant]
     Indication: Dry eye
     Dates: start: 2019
  15. ARMOUR THYROID [Concomitant]
     Active Substance: THYROID, PORCINE
     Indication: Hypothyroidism
     Dates: start: 2017
  16. BUDESONIDE [Concomitant]
     Active Substance: BUDESONIDE
     Indication: Colitis ulcerative
     Dates: start: 2019
  17. BUDESONIDE [Concomitant]
     Active Substance: BUDESONIDE
     Indication: Pouchitis
  18. OMEPRAZOLE [Concomitant]
     Active Substance: OMEPRAZOLE
     Indication: Colitis ulcerative
     Dates: start: 2018
  19. OMEPRAZOLE [Concomitant]
     Active Substance: OMEPRAZOLE
     Indication: Pouchitis
  20. MIRTAZAPINE [Concomitant]
     Active Substance: MIRTAZAPINE
     Indication: Colitis ulcerative
     Dates: start: 2020
  21. MIRTAZAPINE [Concomitant]
     Active Substance: MIRTAZAPINE
     Indication: Pouchitis
  22. BENGEL [Concomitant]
     Indication: Acne
     Dates: start: 2019
  23. ONDANSETRON [Concomitant]
     Active Substance: ONDANSETRON
     Indication: Nausea
     Dates: start: 2017
  24. EPINEPHRINE [Concomitant]
     Active Substance: EPINEPHRINE
     Indication: Multiple allergies
     Dates: start: 2019
  25. ESTRADIOL [Concomitant]
     Active Substance: ESTRADIOL
     Indication: Cystitis interstitial
     Dates: start: 2019
  26. FAMOTIDINE [Concomitant]
     Active Substance: FAMOTIDINE
     Indication: Colitis ulcerative
     Dates: start: 2020
  27. FAMOTIDINE [Concomitant]
     Active Substance: FAMOTIDINE
     Indication: Pouchitis
  28. FLUTICASONE [Concomitant]
     Active Substance: FLUTICASONE
     Indication: Seasonal allergy
     Dates: start: 2017
  29. LATANOPROST [Concomitant]
     Active Substance: LATANOPROST
     Indication: Glaucoma
     Dates: start: 2019
  30. OPIUM TINCTURE [Concomitant]
     Active Substance: MORPHINE
     Indication: Colitis ulcerative
     Dates: start: 2019
  31. OPIUM TINCTURE [Concomitant]
     Active Substance: MORPHINE
     Indication: Pouchitis
  32. KETOCONAZOLE [Concomitant]
     Active Substance: KETOCONAZOLE
     Indication: Drug therapy
     Dates: start: 2019

REACTIONS (4)
  - Macular degeneration [Not Recovered/Not Resolved]
  - Maculopathy [Unknown]
  - Off label use [Unknown]
  - Incorrect dose administered [Unknown]

NARRATIVE: CASE EVENT DATE: 20060101
